FAERS Safety Report 18065963 (Version 1)
Quarter: 2020Q3

REPORT INFORMATION
  Report Type: Spontaneous
  Country: US (occurrence: US)
  Receive Date: 20200724
  Receipt Date: 20200724
  Transmission Date: 20201103
  Serious: Yes (Hospitalization)
  Sender: FDA-Public Use
  Company Number: US-MYLANLABS-2020M1067318

PATIENT
  Age: 63 Year
  Sex: Female

DRUGS (9)
  1. XYLOCAINE [Suspect]
     Active Substance: LIDOCAINE HYDROCHLORIDE
     Indication: LOCAL ANAESTHESIA
     Dosage: 6 ML OF 50:50 MIXTURE OF 2% LIDOCAINE AND 0.75% BUPIVACAINE
     Route: 056
  2. MIDAZOLAM. [Concomitant]
     Active Substance: MIDAZOLAM
     Indication: ANAESTHESIA
  3. FENTANYL. [Concomitant]
     Active Substance: FENTANYL
     Indication: ANAESTHESIA
     Dosage: 25 MICROGRAM
     Route: 065
  4. XYLOCAINE [Suspect]
     Active Substance: LIDOCAINE HYDROCHLORIDE
     Dosage: 1 ML OF 25 MG/ML CHLORPROMAZINE MIXED WITH 1 ML OF..
     Route: 056
  5. HYALURONIDASE [Concomitant]
     Active Substance: HYALURONIDASE
     Indication: LOCAL ANAESTHESIA
     Dosage: UNITS (WITH LIDOCAINE AND BUPIVACAINE)
     Route: 056
  6. BUPIVACAINE. [Suspect]
     Active Substance: BUPIVACAINE
     Indication: LOCAL ANAESTHESIA
     Dosage: 6 ML OF 50:50 MIXTURE OF 2% LIDOCAINE AND 0.75% BUPIVACAINE
     Route: 056
  7. MIDAZOLAM. [Concomitant]
     Active Substance: MIDAZOLAM
     Indication: ANXIETY
     Dosage: 2 MILLIGRAM TWICE TOTALLY
     Route: 065
  8. CHLORPROMAZINE HYDROCHLORIDE. [Suspect]
     Active Substance: CHLORPROMAZINE HYDROCHLORIDE
     Indication: EYE PAIN
     Dosage: 1 ML OF 25 MG/ML CHLORPROMAZINE MIXED WITH 1 ML OF..
     Route: 056
  9. KETAMINE [Concomitant]
     Active Substance: KETAMINE
     Indication: ANAESTHESIA
     Dosage: 10 MILLIGRAM
     Route: 065

REACTIONS (6)
  - Hypotension [Recovered/Resolved]
  - Off label use [Unknown]
  - Depressed level of consciousness [Recovered/Resolved]
  - Somnolence [Recovered/Resolved]
  - Local anaesthetic systemic toxicity [Recovered/Resolved]
  - Sedation [Recovered/Resolved]
